FAERS Safety Report 12065078 (Version 1)
Quarter: 2016Q1

REPORT INFORMATION
  Report Type: Spontaneous
  Country: US (occurrence: US)
  Receive Date: 20160210
  Receipt Date: 20160210
  Transmission Date: 20160526
  Serious: Yes (Hospitalization)
  Sender: FDA-Public Use
  Company Number: US-FRI-1000082476

PATIENT
  Age: 95 Year
  Sex: Female

DRUGS (4)
  1. NAMENDA XR [Suspect]
     Active Substance: MEMANTINE HYDROCHLORIDE
     Dosage: 14MG
     Route: 048
     Dates: start: 20151229, end: 201601
  2. NAMENDA XR [Suspect]
     Active Substance: MEMANTINE HYDROCHLORIDE
     Dosage: 14MG
     Route: 048
     Dates: end: 201512
  3. ARICEPT [Concomitant]
     Active Substance: DONEPEZIL HYDROCHLORIDE
  4. NAMENDA XR [Suspect]
     Active Substance: MEMANTINE HYDROCHLORIDE
     Dosage: 28MG
     Route: 048
     Dates: start: 201601, end: 201601

REACTIONS (6)
  - Speech disorder [Not Recovered/Not Resolved]
  - Catatonia [Not Recovered/Not Resolved]
  - Dyskinesia [Not Recovered/Not Resolved]
  - Fall [Recovered/Resolved]
  - Urinary retention [Unknown]
  - Performance status decreased [Not Recovered/Not Resolved]

NARRATIVE: CASE EVENT DATE: 20151223
